FAERS Safety Report 6569494-X (Version None)
Quarter: 2010Q1

REPORT INFORMATION
  Report Type: 
  Country: None (occurrence: None)
  Receive Date: 20100204
  Receipt Date: 20100126
  Transmission Date: 20100710
  Serious: Yes (Hospitalization)
  Sender: FDA-Public Use
  Company Number: JP-BAYER-201010192BYL

PATIENT
  Age: 77 Year
  Sex: Male
  Weight: 55 kg

DRUGS (2)
  1. NEXAVAR [Suspect]
     Indication: HEPATIC NEOPLASM MALIGNANT
     Dosage: TOTAL DAILY DOSE: 800 MG  UNIT DOSE: 200 MG
     Route: 048
     Dates: start: 20091209, end: 20091220
  2. LIVACT [Concomitant]
     Indication: HYPOALBUMINAEMIA
     Dosage: UNIT DOSE: 4.15 G
     Route: 048
     Dates: start: 20091209, end: 20091220

REACTIONS (1)
  - SEPSIS [None]
